FAERS Safety Report 16361928 (Version 6)
Quarter: 2020Q1

REPORT INFORMATION
  Report Type: Report from Study
  Country: JP (occurrence: JP)
  Receive Date: 20190528
  Receipt Date: 20200204
  Transmission Date: 20200409
  Serious: Yes (Hospitalization, Other)
  Sender: FDA-Public Use
  Company Number: JP-JNJFOC-20190530913

PATIENT
  Age: 57 Year
  Sex: Female
  Weight: 67 kg

DRUGS (3)
  1. DARZALEX [Suspect]
     Active Substance: DARATUMUMAB
     Indication: PLASMA CELL MYELOMA
     Route: 041
     Dates: start: 20171215, end: 20180208
  2. DEXAMETHASONE. [Suspect]
     Active Substance: DEXAMETHASONE
     Indication: PLASMA CELL MYELOMA
     Route: 065
     Dates: start: 20171215, end: 20180209
  3. LENALIDOMIDE [Suspect]
     Active Substance: LENALIDOMIDE
     Indication: PLASMA CELL MYELOMA
     Route: 048
     Dates: start: 20171215, end: 20171225

REACTIONS (7)
  - Febrile neutropenia [Recovered/Resolved]
  - Epistaxis [Recovered/Resolved]
  - White blood cell count decreased [Not Recovered/Not Resolved]
  - Disease progression [Unknown]
  - Cytomegalovirus infection [Recovered/Resolved]
  - Thrombocytopenia [Not Recovered/Not Resolved]
  - Infusion related reaction [Recovered/Resolved]

NARRATIVE: CASE EVENT DATE: 20171215
